FAERS Safety Report 9035130 (Version 1)
Quarter: 2013Q1

REPORT INFORMATION
  Report Type: Report from Study
  Country: US (occurrence: US)
  Receive Date: 20130129
  Receipt Date: 20130129
  Transmission Date: 20140127
  Serious: No
  Sender: FDA-Public Use
  Company Number: US-ABBOTT-12P-163-0899417-00

PATIENT
  Age: 57 Year
  Sex: Female

DRUGS (6)
  1. HUMIRA 40 MG/0.8 ML PEN [Suspect]
     Indication: RHEUMATOID ARTHRITIS
     Dates: start: 201201
  2. HYDROXYCHLOROQUINE [Concomitant]
     Indication: RHEUMATOID ARTHRITIS
  3. METHOTREXATE [Concomitant]
     Indication: RHEUMATOID ARTHRITIS
  4. FOLIC ACID [Concomitant]
     Indication: PRODUCT USED FOR UNKNOWN INDICATION
     Route: 048
  5. ALENDRONATE [Concomitant]
     Indication: OSTEOPOROSIS
  6. UNKNOWN MEDICATION [Concomitant]
     Indication: CYSTITIS
     Dates: start: 201201

REACTIONS (2)
  - Vaginal infection [Recovered/Resolved]
  - Vaginal discharge [Recovered/Resolved]
